FAERS Safety Report 4700026-4 (Version None)
Quarter: 2005Q2

REPORT INFORMATION
  Report Type: 
  Country: None (occurrence: None)
  Receive Date: 20050623
  Receipt Date: 20050609
  Transmission Date: 20051028
  Serious: Yes (Hospitalization)
  Sender: FDA-Public Use
  Company Number: 200413162BCC

PATIENT
  Sex: Male

DRUGS (14)
  1. ALEVE [Suspect]
     Indication: DEMENTIA ALZHEIMER'S TYPE
     Dosage: BID,ORAL
     Route: 048
     Dates: start: 20010807, end: 20031229
  2. ALEVE [Suspect]
     Indication: PROPHYLAXIS
     Dosage: BID,ORAL
     Route: 048
     Dates: start: 20010807, end: 20031229
  3. COZAAR [Concomitant]
  4. ALLOPURINOL [Concomitant]
  5. GLUCOTROL [Concomitant]
  6. GLUCOPHAGE [Concomitant]
  7. VANCENASE AQ [Concomitant]
  8. SLOW-FE [Concomitant]
  9. ASPIRIN [Concomitant]
  10. HYTRIN [Concomitant]
  11. PLAVIX [Concomitant]
  12. CEPHALEXIN [Concomitant]
  13. PRILOSEC [Concomitant]
  14. NITROSTAT [Concomitant]

REACTIONS (13)
  - ANAEMIA [None]
  - BODY TEMPERATURE INCREASED [None]
  - CHEST PAIN [None]
  - CONSTIPATION [None]
  - CORONARY ARTERY DISEASE [None]
  - DIVERTICULUM [None]
  - GASTRITIS [None]
  - HAEMATOCHEZIA [None]
  - HAEMATOCRIT DECREASED [None]
  - HIATUS HERNIA [None]
  - INJECTION SITE INFECTION [None]
  - RECTAL HAEMORRHAGE [None]
  - STRESS [None]
